FAERS Safety Report 7974464-0 (Version None)
Quarter: 2011Q4

REPORT INFORMATION
  Report Type: 
  Country: None (occurrence: None)
  Receive Date: 20111213
  Receipt Date: 20111205
  Transmission Date: 20120403
  Serious: Yes (Hospitalization)
  Sender: FDA-Public Use
  Company Number: JP-ASTRAZENECA-2011SE74614

PATIENT
  Age: 81 Year
  Sex: Male

DRUGS (1)
  1. SEROQUEL [Suspect]
     Route: 048
     Dates: start: 20101213, end: 20101224

REACTIONS (2)
  - URINARY RETENTION [None]
  - PNEUMONIA ASPIRATION [None]
